FAERS Safety Report 10986180 (Version 1)
Quarter: 2015Q2

REPORT INFORMATION
  Report Type: Spontaneous
  Country: US (occurrence: None)
  Receive Date: 20150403
  Receipt Date: 20150403
  Transmission Date: 20150821
  Serious: Yes (Disabling)
  Sender: FDA-Public Use
  Company Number: None

PATIENT
  Age: 63 Year
  Sex: Female
  Weight: 92.99 kg

DRUGS (18)
  1. BIOTIN [Concomitant]
     Active Substance: BIOTIN
  2. MAGNESIUM [Concomitant]
     Active Substance: MAGNESIUM
  3. ACIPHEX [Concomitant]
     Active Substance: RABEPRAZOLE SODIUM
  4. KRILL OIL [Concomitant]
     Active Substance: DIETARY SUPPLEMENT
  5. VITAMIN C [Concomitant]
     Active Substance: ASCORBIC ACID
  6. SENIOR MULTIVTE [Concomitant]
  7. L-CARNITINE [Concomitant]
     Active Substance: CARNITINE
  8. BABY ASPIRIN [Concomitant]
     Active Substance: ASPIRIN
  9. VITAMIN D [Concomitant]
     Active Substance: CHOLECALCIFEROL
  10. VITAMIN B12 [Concomitant]
     Active Substance: CYANOCOBALAMIN
  11. SOY-MENOPAUSE [Concomitant]
  12. ATENOLOL. [Concomitant]
     Active Substance: ATENOLOL
  13. FLONASE [Concomitant]
     Active Substance: FLUTICASONE PROPIONATE
  14. ACIPHEX [Suspect]
     Active Substance: RABEPRAZOLE SODIUM
     Indication: GASTROOESOPHAGEAL REFLUX DISEASE
     Route: 048
  15. COQ10 [Concomitant]
     Active Substance: UBIDECARENONE
  16. VITAMIN E [Concomitant]
     Active Substance: .ALPHA.-TOCOPHEROL
  17. CALCIUM [Concomitant]
     Active Substance: CALCIUM
  18. VIT B COMPLEX [Concomitant]

REACTIONS (6)
  - Product substitution issue [None]
  - Diabetes mellitus inadequate control [None]
  - Product quality issue [None]
  - Gastrointestinal disorder [None]
  - Cardiac disorder [None]
  - Drug ineffective [None]

NARRATIVE: CASE EVENT DATE: 20150202
